FAERS Safety Report 10083969 (Version 1)
Quarter: 2014Q2

REPORT INFORMATION
  Report Type: Spontaneous
  Country: US (occurrence: US)
  Receive Date: 20140417
  Receipt Date: 20140417
  Transmission Date: 20141212
  Serious: No
  Sender: FDA-Public Use
  Company Number: US-009507513-1404USA004672

PATIENT
  Age: 26 Year
  Sex: Female
  Weight: 46.26 kg

DRUGS (3)
  1. NEXPLANON [Suspect]
     Indication: CONTRACEPTION
     Dosage: 3 YEAR IMPLANT
     Dates: start: 20130521
  2. KLONOPIN [Concomitant]
  3. CELEXA [Concomitant]

REACTIONS (4)
  - Amenorrhoea [Recovered/Resolved]
  - Menorrhagia [Unknown]
  - Dysmenorrhoea [Unknown]
  - Breast pain [Unknown]
